FAERS Safety Report 10309017 (Version 1)
Quarter: 2014Q3

REPORT INFORMATION
  Report Type: Report from Study
  Country: US (occurrence: US)
  Receive Date: 20140716
  Receipt Date: 20140716
  Transmission Date: 20150326
  Serious: Yes (Other)
  Sender: FDA-Public Use
  Company Number: US-BAYER-2014-104170

PATIENT
  Age: 45 Year
  Sex: Female

DRUGS (1)
  1. BETASERON [Suspect]
     Active Substance: INTERFERON BETA-1B
     Indication: RELAPSING-REMITTING MULTIPLE SCLEROSIS
     Dosage: 8 MIU, QOD
     Route: 058
     Dates: start: 20030417

REACTIONS (5)
  - Injection site abscess [Not Recovered/Not Resolved]
  - Pain [Not Recovered/Not Resolved]
  - Injection site abscess [None]
  - Pain [None]
  - Injection site mass [None]

NARRATIVE: CASE EVENT DATE: 201406
